FAERS Safety Report 4294432-2 (Version None)
Quarter: 2004Q1

REPORT INFORMATION
  Report Type: 
  Country: None (occurrence: None)
  Receive Date: 20040211
  Receipt Date: 20040123
  Transmission Date: 20041129
  Serious: Yes (Other)
  Sender: FDA-Public Use
  Company Number: USA030639090

PATIENT
  Age: 73 Year
  Sex: Female
  Weight: 67 kg

DRUGS (3)
  1. HUMULIN N [Suspect]
     Indication: DIABETES MELLITUS
     Dosage: 25 U/DAY
     Dates: start: 19980101
  2. HUMALOG [Suspect]
     Indication: DIABETES MELLITUS
     Dosage: 9 U/DAY
  3. NOVOLOG [Concomitant]

REACTIONS (6)
  - BLOOD GLUCOSE DECREASED [None]
  - BLOOD GLUCOSE INCREASED [None]
  - EYE DISCHARGE [None]
  - EYE DISORDER [None]
  - IRRITABILITY [None]
  - MOVEMENT DISORDER [None]
